FAERS Safety Report 10864911 (Version 2)
Quarter: 2016Q2

REPORT INFORMATION
  Report Type: Report from Study
  Country: US (occurrence: US)
  Receive Date: 20150224
  Receipt Date: 20160505
  Transmission Date: 20160815
  Serious: No
  Sender: FDA-Public Use
  Company Number: US-AMGEN-USASL2015015154

PATIENT
  Age: 47 Year
  Sex: Male

DRUGS (1)
  1. ENBREL [Suspect]
     Active Substance: ETANERCEPT
     Indication: RHEUMATOID ARTHRITIS
     Dosage: 50 MG, WEEKLY
     Route: 058
     Dates: start: 20150120

REACTIONS (5)
  - Rash generalised [Unknown]
  - Eye swelling [Unknown]
  - Headache [Unknown]
  - Lacrimation increased [Unknown]
  - Mobility decreased [Unknown]

NARRATIVE: CASE EVENT DATE: 2015
